FAERS Safety Report 18160144 (Version 5)
Quarter: 2020Q4

REPORT INFORMATION
  Report Type: Report from Study
  Country: US (occurrence: US)
  Receive Date: 20200818
  Receipt Date: 20201109
  Transmission Date: 20210113
  Serious: No
  Sender: FDA-Public Use
  Company Number: US-IPSEN BIOPHARMACEUTICALS, INC.-2020-00421

PATIENT
  Age: 5 Year
  Sex: Male
  Weight: 19.1 kg

DRUGS (10)
  1. IBU-PROFEN [Concomitant]
     Indication: PAIN
     Dates: start: 20161112
  2. MIRALAX [Concomitant]
     Active Substance: POLYETHYLENE GLYCOL 3350
     Indication: CONSTIPATION
     Dosage: 1 TABLESPOON
     Dates: start: 20181119, end: 20190925
  3. MIRALAX [Concomitant]
     Active Substance: POLYETHYLENE GLYCOL 3350
     Indication: CONSTIPATION
     Dosage: 1 TABLESPOON, EVERY OTHER DAY
     Dates: start: 20140329, end: 20181119
  4. BACLOFEN. [Concomitant]
     Active Substance: BACLOFEN
     Indication: MUSCLE SPASTICITY
     Dates: start: 20150102
  5. DYSPORT [Suspect]
     Active Substance: ABOBOTULINUMTOXINA
     Indication: MUSCLE SPASTICITY
     Dosage: 450 IU
     Route: 030
     Dates: start: 20191213, end: 20191213
  6. MIRALAX [Concomitant]
     Active Substance: POLYETHYLENE GLYCOL 3350
     Dates: start: 20190925
  7. CULTURELLE KIDS CHEW [Concomitant]
     Indication: PROBIOTIC THERAPY
     Dates: start: 20180730
  8. ACYCLOVIR. [Concomitant]
     Active Substance: ACYCLOVIR
     Indication: HERPES VIRUS INFECTION
     Dates: start: 20190114, end: 20190119
  9. MILK OF MAGNESIA [Concomitant]
     Active Substance: MAGNESIUM HYDROXIDE
     Indication: CONSTIPATION
     Dosage: DOSE: 1 TABLESPOON, AS NEEDED
     Dates: start: 20180730
  10. CHOLECALCIFEROL [Concomitant]
     Active Substance: CHOLECALCIFEROL
     Indication: VITAMIN SUPPLEMENTATION
     Dates: start: 20190108

REACTIONS (6)
  - Pyrexia [Recovered/Resolved]
  - Otitis externa [Recovered/Resolved]
  - Otitis media acute [Recovered/Resolved]
  - Upper respiratory tract infection [Recovered/Resolved]
  - Tooth loss [Recovered/Resolved]
  - Insomnia [Not Recovered/Not Resolved]

NARRATIVE: CASE EVENT DATE: 20191115
